FAERS Safety Report 11358399 (Version 1)
Quarter: 2015Q3

REPORT INFORMATION
  Report Type: Spontaneous
  Country: US (occurrence: US)
  Receive Date: 20150803
  Receipt Date: 20150803
  Transmission Date: 20151125
  Serious: No
  Sender: FDA-Public Use
  Company Number: US-ELI_LILLY_AND_COMPANY-US200712001853

PATIENT
  Age: 62 Year
  Sex: Female

DRUGS (8)
  1. STRATTERA [Suspect]
     Active Substance: ATOMOXETINE HYDROCHLORIDE
     Dosage: 18 MG, DAILY (1/D)
     Route: 048
  2. CELEXA [Concomitant]
     Active Substance: CITALOPRAM HYDROBROMIDE
  3. ESTROGEN NOS [Concomitant]
     Active Substance: ESTROGENS
     Dosage: UNK, UNK
     Dates: start: 1997
  4. STRATTERA [Suspect]
     Active Substance: ATOMOXETINE HYDROCHLORIDE
     Dosage: 20 MG, DAILY (1/D)
     Route: 048
     Dates: start: 200711
  5. ADDERALL [Concomitant]
     Active Substance: AMPHETAMINE ASPARTATE\AMPHETAMINE SULFATE\DEXTROAMPHETAMINE SACCHARATE\DEXTROAMPHETAMINE SULFATE
  6. STRATTERA [Suspect]
     Active Substance: ATOMOXETINE HYDROCHLORIDE
     Indication: ATTENTION DEFICIT/HYPERACTIVITY DISORDER
     Dosage: 10 MG, 2/D
     Route: 048
  7. STRATTERA [Suspect]
     Active Substance: ATOMOXETINE HYDROCHLORIDE
     Dosage: 40 MG, DAILY (1/D)
     Route: 048
  8. XANAX [Concomitant]
     Active Substance: ALPRAZOLAM

REACTIONS (4)
  - Hot flush [Recovered/Resolved]
  - Skin burning sensation [Recovered/Resolved]
  - Flushing [Recovered/Resolved]
  - Blood pressure increased [Unknown]
